FAERS Safety Report 13132975 (Version 2)
Quarter: 2017Q2

REPORT INFORMATION
  Report Type: Spontaneous
  Country: US (occurrence: US)
  Receive Date: 20170120
  Receipt Date: 20170414
  Transmission Date: 20170830
  Serious: Yes (Life-Threatening, Other)
  Sender: FDA-Public Use
  Company Number: US-UCBSA-2017002173

PATIENT
  Sex: Male

DRUGS (7)
  1. KEPPRA [Suspect]
     Active Substance: LEVETIRACETAM
     Indication: PRODUCT USED FOR UNKNOWN INDICATION
     Dosage: UNK
  2. VITAMIN D [Concomitant]
     Active Substance: CHOLECALCIFEROL
     Indication: PRODUCT USED FOR UNKNOWN INDICATION
     Dosage: 400 IU, ONCE DAILY (QD)
  3. LAMOTRIGINE. [Concomitant]
     Active Substance: LAMOTRIGINE
     Indication: PRODUCT USED FOR UNKNOWN INDICATION
     Dosage: 75 MG, 2X/DAY (BID)
  4. LORATADINE. [Concomitant]
     Active Substance: LORATADINE
     Indication: PRODUCT USED FOR UNKNOWN INDICATION
     Dosage: UNK, AS NEEDED (PRN)
  5. KLONOPIN [Concomitant]
     Active Substance: CLONAZEPAM
     Indication: PRODUCT USED FOR UNKNOWN INDICATION
     Dosage: UNK 0.5 MG (1/2 TABLET AT HS)
  6. VIMPAT [Concomitant]
     Active Substance: LACOSAMIDE
     Indication: PRODUCT USED FOR UNKNOWN INDICATION
     Dosage: 200 MG, 2X/DAY (BID)
  7. POLYETHYLENE GLYCOL [Concomitant]
     Active Substance: POLYETHYLENE GLYCOLS

REACTIONS (3)
  - Encephalopathy [Unknown]
  - Seizure [Recovered/Resolved]
  - Hypersensitivity [Recovered/Resolved]

NARRATIVE: CASE EVENT DATE: 2000
